FAERS Safety Report 13776685 (Version 1)
Quarter: 2017Q3

REPORT INFORMATION
  Report Type: Spontaneous
  Country: US (occurrence: US)
  Receive Date: 20170721
  Receipt Date: 20170721
  Transmission Date: 20171127
  Serious: Yes (Hospitalization, Other)
  Sender: FDA-Public Use
  Company Number: US-PFIZER INC-2017314417

PATIENT
  Age: 77 Year
  Sex: Female

DRUGS (10)
  1. GABAPENTIN. [Concomitant]
     Active Substance: GABAPENTIN
     Dosage: 400 MG, 3X/DAY
  2. ELIQUIS [Concomitant]
     Active Substance: APIXABAN
     Dosage: 5 MG, 2X/DAY
  3. PLAQUENIL [Concomitant]
     Active Substance: HYDROXYCHLOROQUINE SULFATE
     Dosage: 20 MG, 1X/DAY
  4. LYRICA [Suspect]
     Active Substance: PREGABALIN
     Indication: BURNING SENSATION
     Dosage: 25 MG, 2X/DAY
     Route: 048
  5. BACLOFEN. [Concomitant]
     Active Substance: BACLOFEN
     Dosage: 50 MG, DAILY (20 MG IN THE MORNING 20 IN THE EVENING AND 10 IN THE AFTERNOON)
  6. POTASSIUM CHLORIDE. [Concomitant]
     Active Substance: POTASSIUM CHLORIDE
     Dosage: 20 MEQ, 1X/DAY
  7. MIRAPEX [Concomitant]
     Active Substance: PRAMIPEXOLE DIHYDROCHLORIDE
     Dosage: 0.75 UNK, 2X/DAY
  8. RITUXAN [Concomitant]
     Active Substance: RITUXIMAB
     Dosage: 4 TIMES A YEAR
  9. LYRICA [Suspect]
     Active Substance: PREGABALIN
     Indication: SKIN EXFOLIATION
  10. LEVOTHYROXINE. [Concomitant]
     Active Substance: LEVOTHYROXINE
     Dosage: 112 UG, 1X/DAY (ONE IN THE MORNING)

REACTIONS (3)
  - Urinary tract infection [Unknown]
  - Sepsis [Unknown]
  - Fall [Unknown]
